FAERS Safety Report 9379069 (Version 1)
Quarter: 2013Q3

REPORT INFORMATION
  Report Type: Spontaneous
  Country: DE (occurrence: DE)
  Receive Date: 20130702
  Receipt Date: 20130702
  Transmission Date: 20140515
  Serious: Yes (Other)
  Sender: FDA-Public Use
  Company Number: PHHY2013DE067221

PATIENT
  Sex: Female

DRUGS (1)
  1. LEPONEX [Suspect]
     Indication: SCHIZOPHRENIA, PARANOID TYPE
     Dosage: 150 MG, DAY
     Route: 048
     Dates: start: 201306

REACTIONS (4)
  - Phlebitis [Not Recovered/Not Resolved]
  - Inflammation [Not Recovered/Not Resolved]
  - Schizophrenia, paranoid type [Unknown]
  - Weight increased [Unknown]
